FAERS Safety Report 15423931 (Version 1)
Quarter: 2018Q3

REPORT INFORMATION
  Report Type: Spontaneous
  Country: US (occurrence: US)
  Receive Date: 20180920
  Receipt Date: 20180920
  Transmission Date: 20181010
  Serious: Yes (Other)
  Sender: FDA-Public Use
  Company Number: None

PATIENT
  Age: 36 Year
  Sex: Female
  Weight: 85.5 kg

DRUGS (6)
  1. APPLE CIDER VINEGAR [Concomitant]
     Active Substance: APPLE CIDER VINEGAR
  2. DULOXETINE HCL [Suspect]
     Active Substance: DULOXETINE HYDROCHLORIDE
     Indication: ANXIETY
     Dosage: ?          QUANTITY:1 CAPSULE(S);?
     Route: 048
     Dates: start: 20171024, end: 20180908
  3. VITAMIN B COMPLEX [Concomitant]
     Active Substance: CYANOCOBALAMIN\DEXPANTHENOL\NIACINAMIDE\PYRIDOXINE HYDROCHLORIDE\RIBOFLAVIN 5^-PHOSPHATE SODIUM\THIAMINE HYDROCHLORIDE\VITAMIN B COMPLEX
  4. MAGNESIUM [Concomitant]
     Active Substance: MAGNESIUM
  5. VITAMIN D [Concomitant]
     Active Substance: CHOLECALCIFEROL
  6. L?LYSINE [Concomitant]
     Active Substance: LYSINE

REACTIONS (14)
  - Weight increased [None]
  - Paraesthesia [None]
  - Fatigue [None]
  - Arthralgia [None]
  - Hyperhidrosis [None]
  - Chills [None]
  - Hot flush [None]
  - Disturbance in attention [None]
  - Dizziness [None]
  - Agitation [None]
  - Feeling abnormal [None]
  - Piloerection [None]
  - Drug withdrawal syndrome [None]
  - Nausea [None]

NARRATIVE: CASE EVENT DATE: 20180916
